FAERS Safety Report 12242440 (Version 5)
Quarter: 2020Q4

REPORT INFORMATION
  Report Type: Report from Study
  Country: BR (occurrence: BR)
  Receive Date: 20160406
  Receipt Date: 20201217
  Transmission Date: 20210113
  Serious: Yes (Life-Threatening, Hospitalization, Other)
  Sender: FDA-Public Use
  Company Number: PHHY2016BR037060

PATIENT
  Sex: Female
  Weight: 74 kg

DRUGS (5)
  1. DUOVENT [Concomitant]
     Active Substance: FENOTEROL HYDROBROMIDE
     Indication: PRODUCT USED FOR UNKNOWN INDICATION
     Dosage: UNK
     Route: 065
  2. PREDNISONE. [Concomitant]
     Active Substance: PREDNISONE
     Indication: PRODUCT USED FOR UNKNOWN INDICATION
     Dosage: UNK
     Route: 065
  3. XOLAIR [Suspect]
     Active Substance: OMALIZUMAB
     Indication: ASTHMA
     Dosage: 450 MG, EVERY 15 DAYS
     Route: 058
     Dates: start: 20150902
  4. XOLAIR [Suspect]
     Active Substance: OMALIZUMAB
     Dosage: 3 DF ( 3 AMPOULES, EVERY 15 DAYS)
     Route: 065
     Dates: start: 201709
  5. FORASEQ [Suspect]
     Active Substance: BUDESONIDE\FORMOTEROL FUMARATE
     Indication: ASTHMA
     Dosage: 1 DF (400 MCG BUDESONIDE, 12 MCG FORMOTEROL FUMARATE), Q12H
     Route: 055
     Dates: start: 2013

REACTIONS (10)
  - Asthma [Not Recovered/Not Resolved]
  - Asthmatic crisis [Not Recovered/Not Resolved]
  - Inappropriate schedule of product administration [Not Recovered/Not Resolved]
  - Malaise [Unknown]
  - Chest pain [Not Recovered/Not Resolved]
  - Weight increased [Unknown]
  - Chest discomfort [Not Recovered/Not Resolved]
  - Chills [Unknown]
  - Dyspnoea [Not Recovered/Not Resolved]
  - Syncope [Not Recovered/Not Resolved]
